FAERS Safety Report 19887419 (Version 2)
Quarter: 2022Q1

REPORT INFORMATION
  Report Type: Report from Study
  Country: BR (occurrence: BR)
  Receive Date: 20210928
  Receipt Date: 20220115
  Transmission Date: 20220423
  Serious: Yes (Other)
  Sender: FDA-Public Use
  Company Number: BR-NOVARTISPH-NVSC2021BR212937

PATIENT
  Age: 57 Year
  Sex: Female

DRUGS (2)
  1. COSENTYX [Suspect]
     Active Substance: SECUKINUMAB
     Indication: Psoriatic arthropathy
     Dosage: 300 MG, QW  (FOR 5 WEEKS)
     Route: 065
  2. COSENTYX [Suspect]
     Active Substance: SECUKINUMAB
     Dosage: 300 MG, QW (LAST APPLICATION)
     Route: 065
     Dates: start: 20210827

REACTIONS (16)
  - Diabetes mellitus [Unknown]
  - Glycosylated haemoglobin increased [Unknown]
  - Diabetic neuropathy [Unknown]
  - Joint swelling [Recovering/Resolving]
  - Peripheral swelling [Recovering/Resolving]
  - Pigmentation disorder [Unknown]
  - Erythema [Unknown]
  - Pain [Unknown]
  - Hypertension [Unknown]
  - Blood pressure abnormal [Unknown]
  - Headache [Recovered/Resolved]
  - Lip dry [Recovered/Resolved]
  - Anaemia [Recovering/Resolving]
  - Somnolence [Unknown]
  - Asthenia [Unknown]
  - Inappropriate schedule of product administration [Unknown]

NARRATIVE: CASE EVENT DATE: 20210801
